FAERS Safety Report 11225214 (Version 1)
Quarter: 2015Q2

REPORT INFORMATION
  Report Type: Spontaneous
  Country: US (occurrence: None)
  Receive Date: 20150626
  Receipt Date: 20150626
  Transmission Date: 20150821
  Serious: Yes (Life-Threatening)
  Sender: FDA-Public Use
  Company Number: None

PATIENT
  Age: 38 Year
  Sex: Male

DRUGS (1)
  1. BUPROPION 75 MG [Suspect]
     Active Substance: BUPROPION
     Indication: DEPRESSION
     Dosage: BY MOUTH
     Dates: start: 20150506, end: 20150608

REACTIONS (2)
  - Headache [None]
  - Contusion [None]

NARRATIVE: CASE EVENT DATE: 20150506
